FAERS Safety Report 17130563 (Version 2)
Quarter: 2020Q1

REPORT INFORMATION
  Report Type: Spontaneous
  Country: US (occurrence: US)
  Receive Date: 20191209
  Receipt Date: 20200110
  Transmission Date: 20200409
  Serious: No
  Sender: FDA-Public Use
  Company Number: US-BIOMARINAP-US-2019-127057

PATIENT
  Sex: Female
  Weight: 37.7 kg

DRUGS (1)
  1. VIMIZIM [Suspect]
     Active Substance: ELOSULFASE ALFA
     Indication: MUCOPOLYSACCHARIDOSIS IV
     Dosage: 90 MILLIGRAM, QW
     Route: 042
     Dates: start: 20141029

REACTIONS (2)
  - Product dose omission [Unknown]
  - Malaise [Unknown]
